FAERS Safety Report 9501715 (Version 1)
Quarter: 2013Q3

REPORT INFORMATION
  Report Type: Spontaneous
  Country: US (occurrence: US)
  Receive Date: 20130905
  Receipt Date: 20130905
  Transmission Date: 20140515
  Serious: Yes (Death)
  Sender: FDA-Public Use
  Company Number: US-ROCHE-1269897

PATIENT
  Sex: Female

DRUGS (1)
  1. ERIVEDGE [Suspect]
     Indication: SKIN CANCER
     Route: 065

REACTIONS (1)
  - Death [Fatal]
